FAERS Safety Report 14354302 (Version 1)
Quarter: 2018Q1

REPORT INFORMATION
  Report Type: Spontaneous
  Country: CH (occurrence: CH)
  Receive Date: 20180105
  Receipt Date: 20180105
  Transmission Date: 20180509
  Serious: Yes (Hospitalization)
  Sender: FDA-Public Use
  Company Number: CH-ASTRAZENECA-2018SE00434

PATIENT
  Age: 1004 Month
  Sex: Female

DRUGS (13)
  1. MARCOUMAR [Suspect]
     Active Substance: PHENPROCOUMON
     Indication: ATRIAL FIBRILLATION
     Route: 048
     Dates: end: 20171129
  2. FRAGMIN [Suspect]
     Active Substance: DALTEPARIN SODIUM
     Indication: ACUTE MYOCARDIAL INFARCTION
     Dosage: 500 IU
     Route: 051
     Dates: start: 20171206, end: 20171206
  3. PANTOZOL [Concomitant]
     Active Substance: PANTOPRAZOLE SODIUM
  4. QUETIAPINE. [Concomitant]
     Active Substance: QUETIAPINE
  5. BELOC ZOK [Concomitant]
     Active Substance: METOPROLOL SUCCINATE
  6. ATORVASTATIN [Concomitant]
     Active Substance: ATORVASTATIN
  7. PLAVIX [Suspect]
     Active Substance: CLOPIDOGREL BISULFATE
     Indication: ACUTE MYOCARDIAL INFARCTION
     Route: 048
     Dates: start: 20171201
  8. PREDNISONE. [Concomitant]
     Active Substance: PREDNISONE
  9. BRILIQUE [Suspect]
     Active Substance: TICAGRELOR
     Indication: ACUTE MYOCARDIAL INFARCTION
     Route: 048
     Dates: start: 20171130, end: 20171130
  10. DIOVAN [Concomitant]
     Active Substance: VALSARTAN
  11. CORDARONE [Concomitant]
     Active Substance: AMIODARONE HYDROCHLORIDE
     Dosage: 150 MG
     Route: 041
     Dates: start: 20171130, end: 20171130
  12. ASPIRIN. [Suspect]
     Active Substance: ASPIRIN
     Indication: CORONARY ARTERY DISEASE
     Route: 048
  13. HEPARIN [Suspect]
     Active Substance: HEPARIN SODIUM
     Route: 041
     Dates: start: 20171201, end: 20171205

REACTIONS (6)
  - Haemorrhage [Recovered/Resolved]
  - Haemorrhagic anaemia [Recovering/Resolving]
  - Drug interaction [Unknown]
  - Application site haemorrhage [Recovered/Resolved]
  - Epistaxis [Recovered/Resolved]
  - International normalised ratio increased [Recovered/Resolved]

NARRATIVE: CASE EVENT DATE: 201711
